FAERS Safety Report 6060170-9 (Version None)
Quarter: 2009Q1

REPORT INFORMATION
  Report Type: 
  Country: None (occurrence: None)
  Receive Date: 20090128
  Receipt Date: 20090121
  Transmission Date: 20090719
  Serious: Yes (Other)
  Sender: FDA-Public Use
  Company Number: SPV1-2009-00107

PATIENT
  Age: 10 Year
  Sex: Male
  Weight: 30.4 kg

DRUGS (1)
  1. VYVANSE [Suspect]
     Indication: ATTENTION DEFICIT/HYPERACTIVITY DISORDER
     Dosage: 70 MG, 1X/DAY; QD, ORAL
     Route: 048
     Dates: start: 20070801

REACTIONS (10)
  - AGGRESSION [None]
  - AGITATION [None]
  - AMNESIA [None]
  - CONVULSION [None]
  - HALLUCINATION, AUDITORY [None]
  - INSOMNIA [None]
  - RETINAL DETACHMENT [None]
  - VISUAL ACUITY REDUCED [None]
  - VOMITING [None]
  - WEIGHT GAIN POOR [None]
